FAERS Safety Report 7142337-1 (Version None)
Quarter: 2010Q4

REPORT INFORMATION
  Report Type: 
  Country: None (occurrence: None)
  Receive Date: 20101207
  Receipt Date: 20101201
  Transmission Date: 20110411
  Serious: Yes (Death)
  Sender: FDA-Public Use
  Company Number: SE-BAXTER-2010BH028707

PATIENT
  Age: 31 Year
  Sex: Male

DRUGS (9)
  1. HOLOXAN BAXTER [Suspect]
     Indication: TESTIS CANCER
     Route: 042
     Dates: start: 20100915, end: 20100918
  2. CYCLOPHOSPHAMIDE [Suspect]
     Indication: TESTIS CANCER
     Route: 042
     Dates: start: 20100713, end: 20100716
  3. UROMITEXAN BAXTER [Suspect]
     Indication: TESTIS CANCER
     Route: 042
  4. ETOPOSIDE [Suspect]
     Indication: TESTIS CANCER
     Route: 042
     Dates: start: 20100713, end: 20100716
  5. CARBOPLATIN [Suspect]
     Indication: TESTIS CANCER
     Route: 065
     Dates: start: 20100713, end: 20100716
  6. CARBOPLATIN [Suspect]
     Route: 042
     Dates: start: 20100915, end: 20100918
  7. PACLITAXEL [Suspect]
     Indication: TESTIS CANCER
     Route: 042
     Dates: start: 20100914, end: 20100914
  8. PACLITAXEL [Suspect]
     Route: 042
     Dates: start: 20100917, end: 20100917
  9. KALIUMKLORID B. BRAUN [Concomitant]
     Indication: TESTIS CANCER
     Route: 065

REACTIONS (1)
  - CEREBRAL INFARCTION [None]
